FAERS Safety Report 6830007-6 (Version None)
Quarter: 2010Q3

REPORT INFORMATION
  Report Type: 
  Country: None (occurrence: None)
  Receive Date: 20100711
  Receipt Date: 20100415
  Transmission Date: 20110219
  Serious: No
  Sender: FDA-Public Use
  Company Number: US-ALLERGAN-1005028US

PATIENT
  Age: 34 Year
  Sex: Female
  Weight: 135 kg

DRUGS (3)
  1. LATISSE [Suspect]
     Indication: GROWTH OF EYELASHES
     Dosage: UNK
     Route: 061
  2. CLARAVIS [Concomitant]
     Indication: ACNE
     Dosage: 1 UNK, UNK
  3. MULTI-VITAMIN [Concomitant]

REACTIONS (4)
  - EYELID PAIN [None]
  - HAIR DISORDER [None]
  - INAPPROPRIATE SCHEDULE OF DRUG ADMINISTRATION [None]
  - MADAROSIS [None]
